FAERS Safety Report 7803490-7 (Version None)
Quarter: 2011Q4

REPORT INFORMATION
  Report Type: 
  Country: None (occurrence: None)
  Receive Date: 20111007
  Receipt Date: 20110928
  Transmission Date: 20120403
  Serious: Yes (Hospitalization)
  Sender: FDA-Public Use
  Company Number: US-ASTRAZENECA-2011SE58509

PATIENT
  Age: 59 Year
  Sex: Female

DRUGS (20)
  1. NEXIUM [Suspect]
     Route: 048
  2. PRILOSEC [Suspect]
     Route: 048
  3. ZOLOFT [Concomitant]
  4. CATAPRES [Concomitant]
  5. CARAFATE [Concomitant]
  6. MECLIZINE [Concomitant]
  7. NOVOLOG [Concomitant]
     Dosage: 100 UNIT /ML
  8. PROVENTIL-HFA [Concomitant]
  9. PHENERGAN HCL [Concomitant]
  10. VENTOLIN HFA [Concomitant]
  11. SYMBICORT [Concomitant]
     Dosage: 160/4.5 MCG UNKNOWN
     Route: 055
  12. SPIRIVA [Concomitant]
  13. VASOTEC [Concomitant]
  14. INSULIN GLARGINE [Concomitant]
     Dosage: 100 UNIT/ ML (3 ML)
  15. BUSPAR [Concomitant]
  16. VISTARIL [Concomitant]
  17. CRESTOR [Suspect]
     Route: 048
  18. SEROQUEL XR [Concomitant]
     Route: 048
  19. ULTRAM [Concomitant]
  20. VITAMIN D [Concomitant]

REACTIONS (1)
  - ANAEMIA [None]
